FAERS Safety Report 23699829 (Version 1)
Quarter: 2024Q2

REPORT INFORMATION
  Report Type: Other
  Country: JP (occurrence: None)
  Receive Date: 20240403
  Receipt Date: 20240403
  Transmission Date: 20240716
  Serious: Yes (Other)
  Sender: FDA-Public Use
  Company Number: JP-ROCHE-3534055

PATIENT

DRUGS (2)
  1. ATEZOLIZUMAB [Suspect]
     Active Substance: ATEZOLIZUMAB
     Indication: Hepatocellular carcinoma
     Route: 042
  2. BEVACIZUMAB [Suspect]
     Active Substance: BEVACIZUMAB
     Indication: Hepatocellular carcinoma
     Route: 042

REACTIONS (15)
  - Miller Fisher syndrome [Unknown]
  - Dermatitis [Unknown]
  - Hepatic enzyme increased [Unknown]
  - Myocarditis [Unknown]
  - Pericarditis [Unknown]
  - Hypothalamo-pituitary disorder [Unknown]
  - Stomatitis [Unknown]
  - Meningitis [Unknown]
  - Colitis [Unknown]
  - Pruritus [Unknown]
  - Hypothyroidism [Unknown]
  - Nephritis [Unknown]
  - Pneumonitis [Unknown]
  - Rash [Unknown]
  - Diarrhoea [Unknown]
